FAERS Safety Report 4572437-1 (Version None)
Quarter: 2005Q1

REPORT INFORMATION
  Report Type: 
  Country: None (occurrence: None)
  Receive Date: 20050207
  Receipt Date: 20050127
  Transmission Date: 20050727
  Serious: Yes (Disabling)
  Sender: FDA-Public Use
  Company Number: DK-GLAXOSMITHKLINE-B0369891A

PATIENT
  Age: 50 Year
  Sex: Male

DRUGS (1)
  1. VENTOLIN [Suspect]
     Indication: ASTHMA
     Dosage: .1MG UNKNOWN
     Route: 055
     Dates: start: 20041225

REACTIONS (1)
  - MIGRAINE [None]
